FAERS Safety Report 15508953 (Version 1)
Quarter: 2018Q4

REPORT INFORMATION
  Report Type: Spontaneous
  Country: US (occurrence: US)
  Receive Date: 20181016
  Receipt Date: 20181016
  Transmission Date: 20190205
  Serious: Yes (Other)
  Sender: FDA-Public Use
  Company Number: None

PATIENT
  Age: 90 Year
  Sex: Male
  Weight: 58.05 kg

DRUGS (11)
  1. BETIMOL [Concomitant]
     Active Substance: TIMOLOL
  2. MSM [Concomitant]
     Active Substance: DIMETHYL SULFONE
  3. HEMP OIL [Concomitant]
     Active Substance: CANNABIS SATIVA SEED OIL
  4. LYSINE [Concomitant]
     Active Substance: LYSINE
  5. PREDNISONE. [Concomitant]
     Active Substance: PREDNISONE
  6. PRESERVISION [Concomitant]
     Active Substance: MINERALS\VITAMINS
  7. VITAMIN B1 [Concomitant]
     Active Substance: THIAMINE HYDROCHLORIDE
  8. THEANINE [Concomitant]
     Active Substance: THEANINE
  9. TRAVATAN Z [Concomitant]
     Active Substance: TRAVOPROST
  10. ZYTIGA [Suspect]
     Active Substance: ABIRATERONE ACETATE
     Indication: PROSTATE CANCER
     Route: 048
     Dates: start: 20180925
  11. MULTIVITAMIN [Concomitant]
     Active Substance: VITAMINS

REACTIONS (1)
  - Vision blurred [None]
